FAERS Safety Report 18596322 (Version 2)
Quarter: 2020Q4

REPORT INFORMATION
  Report Type: Spontaneous
  Country: NL (occurrence: NL)
  Receive Date: 20201209
  Receipt Date: 20201217
  Transmission Date: 20210114
  Serious: Yes (Hospitalization, Other)
  Sender: FDA-Public Use
  Company Number: NL-ELI_LILLY_AND_COMPANY-NL202011012745

PATIENT
  Sex: Male
  Weight: 91 kg

DRUGS (60)
  1. INSULIN GLARGINE [Suspect]
     Active Substance: INSULIN GLARGINE
     Dosage: 50 IU, QD
     Route: 058
     Dates: start: 20201106, end: 20201108
  2. INSULIN GLARGINE [Suspect]
     Active Substance: INSULIN GLARGINE
     Dosage: 20 IU, QD
     Route: 058
     Dates: start: 20201111, end: 20201112
  3. INSULIN GLARGINE [Suspect]
     Active Substance: INSULIN GLARGINE
     Dosage: 5 IU, QD
     Route: 058
     Dates: start: 20201115
  4. DEXAMETHASONE. [Suspect]
     Active Substance: DEXAMETHASONE
     Dosage: 10 MG, EVERY 6 HRS (QID)
     Route: 042
     Dates: start: 20201026, end: 20201102
  5. DEXAMETHASONE. [Suspect]
     Active Substance: DEXAMETHASONE
     Dosage: 10 MG, EVERY 8 HRS (TID)
     Route: 042
     Dates: start: 20201102, end: 20201108
  6. FLUCONAZOLE. [Concomitant]
     Active Substance: FLUCONAZOLE
     Dosage: 50 MG, QD
     Route: 042
     Dates: start: 20201025, end: 20201110
  7. FLUCONAZOLE. [Concomitant]
     Active Substance: FLUCONAZOLE
     Dosage: 50 MG, DAILY
     Route: 048
     Dates: start: 20201113, end: 20201119
  8. CEFTAZIDIME. [Concomitant]
     Active Substance: CEFTAZIDIME
     Dosage: UNK
     Route: 065
     Dates: start: 20201017, end: 20201024
  9. VALACICLOVIR [Concomitant]
     Active Substance: VALACYCLOVIR HYDROCHLORIDE
     Indication: PRODUCT USED FOR UNKNOWN INDICATION
     Dosage: 500 MG, EVERY 12 HOURS (BID)
     Route: 048
     Dates: start: 20201009, end: 20201024
  10. PANTOPRAZOLE [Concomitant]
     Active Substance: PANTOPRAZOLE
     Dosage: 40 MG, QD
     Route: 048
     Dates: start: 20201112
  11. R DHAC [CYTARABINE] [Suspect]
     Active Substance: CYTARABINE
  12. R DHAC [DEXAMETHASONE] [Suspect]
     Active Substance: DEXAMETHASONE
  13. CEFTRIAXON [Concomitant]
     Active Substance: CEFTRIAXONE
     Dosage: 2000 MG, EVERY 12 HOURS (BID)
     Route: 042
     Dates: start: 20201013, end: 20201013
  14. INSULIN GLARGINE [Suspect]
     Active Substance: INSULIN GLARGINE
     Dosage: 1 INTERNATIONAL UNIT, DAILY
     Route: 058
     Dates: start: 20201115
  15. KTE C19 [Suspect]
     Active Substance: AXICABTAGENE CILOLEUCEL
     Indication: MANTLE CELL LYMPHOMA
     Dosage: UNK UNK, UNKNOWN
     Route: 042
     Dates: start: 20201016, end: 20201016
  16. DEXAMETHASONE. [Suspect]
     Active Substance: DEXAMETHASONE
     Indication: NEUROTOXICITY
     Dosage: 10 MG, DAILY
     Route: 042
     Dates: start: 20201021, end: 20201021
  17. CLEMASTINE [Concomitant]
     Active Substance: CLEMASTINE
     Dosage: 2 MG, ONCE
     Route: 042
     Dates: start: 20201016, end: 20201016
  18. INSULIN GLARGINE [Suspect]
     Active Substance: INSULIN GLARGINE
     Dosage: 15 IU, QD
     Route: 058
     Dates: start: 20201113, end: 20201113
  19. INSULIN GLARGINE [Suspect]
     Active Substance: INSULIN GLARGINE
     Dosage: 10 IU, QD
     Route: 058
     Dates: start: 20201114, end: 20201114
  20. COTRIMOXAZOL [Concomitant]
     Active Substance: SULFAMETHOXAZOLE\TRIMETHOPRIM
     Dosage: UNK, UNKNOWN
     Route: 048
     Dates: start: 20201013
  21. COTRIMOXAZOL [Concomitant]
     Active Substance: SULFAMETHOXAZOLE\TRIMETHOPRIM
     Dosage: 480 MG, DAILY
     Route: 065
     Dates: start: 20201111, end: 20201114
  22. FLUCONAZOLE. [Concomitant]
     Active Substance: FLUCONAZOLE
     Dosage: 50 MG, QD
     Route: 065
     Dates: start: 20201024, end: 20201027
  23. FLUDARABINE [Suspect]
     Active Substance: FLUDARABINE PHOSPHATE
     Route: 042
  24. DEXAMETHASONE. [Suspect]
     Active Substance: DEXAMETHASONE
     Dosage: 10 MG, DAILY
     Route: 048
     Dates: start: 20201022, end: 20201022
  25. DEXAMETHASONE. [Suspect]
     Active Substance: DEXAMETHASONE
     Dosage: 10 MG, EVERY 6 HRS (QID)
     Route: 042
     Dates: start: 20201023, end: 20201024
  26. ONDANSETRON [Concomitant]
     Active Substance: ONDANSETRON
     Dosage: 8 MG, EVERY 12 HOURS (BID)
     Route: 048
     Dates: start: 20201009, end: 20201019
  27. FLUCONAZOLE. [Concomitant]
     Active Substance: FLUCONAZOLE
     Dosage: 50 MG, DAILY
     Route: 042
     Dates: start: 20201015, end: 20201110
  28. VALACICLOVIR [Concomitant]
     Active Substance: VALACYCLOVIR HYDROCHLORIDE
     Dosage: 260 MG, EVERY 12 HOURS (BID)
     Route: 048
     Dates: start: 20201110, end: 20201112
  29. CEFTRIAXON [Concomitant]
     Active Substance: CEFTRIAXONE
     Dosage: 200 MG, EVERY 12 HOURS (BID)
     Route: 042
     Dates: start: 20201109, end: 20201111
  30. LEVETIRACETAM. [Concomitant]
     Active Substance: LEVETIRACETAM
     Dosage: 500 MG, EVERY 12 HOURS (BID)
     Route: 048
     Dates: start: 20201025, end: 20201114
  31. HALOPERIDOL. [Concomitant]
     Active Substance: HALOPERIDOL
     Dosage: 1 MG, DAILY
     Route: 048
     Dates: start: 20201116, end: 20201116
  32. NORADRENALINE (NORPINEPHRINE) [Concomitant]
     Active Substance: NOREPINEPHRINE
     Dosage: UNK
     Route: 042
     Dates: start: 20201024, end: 20201024
  33. INSULIN GLARGINE [Suspect]
     Active Substance: INSULIN GLARGINE
     Indication: PRODUCT USED FOR UNKNOWN INDICATION
     Dosage: UNK UNK, UNKNOWN
     Route: 058
     Dates: start: 20201026, end: 20201103
  34. CYCLOPHOSPHAMIDE. [Suspect]
     Active Substance: CYCLOPHOSPHAMIDE
     Indication: BONE MARROW CONDITIONING REGIMEN
     Dosage: UNK, UNKNOWN
     Route: 042
  35. CYCLOPHOSPHAMIDE. [Suspect]
     Active Substance: CYCLOPHOSPHAMIDE
     Dosage: UNK, UNKNOWN
     Route: 042
  36. R DHAC [CARBOPLATIN] [Suspect]
     Active Substance: CARBOPLATIN
     Indication: MANTLE CELL LYMPHOMA
     Dosage: UNK, UNKNOWN
     Route: 065
  37. CALCIUM GLUCONATE. [Concomitant]
     Active Substance: CALCIUM GLUCONATE
     Dosage: 1000 MG, ONCE
     Route: 042
     Dates: start: 20201024, end: 20201024
  38. VALACICLOVIR [Concomitant]
     Active Substance: VALACYCLOVIR HYDROCHLORIDE
     Dosage: 500 MG, EVERY 12 HOURS (BID)
     Route: 048
     Dates: end: 20201112
  39. LEVETIRACETAM. [Concomitant]
     Active Substance: LEVETIRACETAM
     Dosage: 500 MG, EVERY 12 HOURS (BID)
     Route: 048
     Dates: start: 20201114, end: 20201118
  40. GENTAMICIN. [Concomitant]
     Active Substance: GENTAMICIN
     Dosage: 440 MG, ONCE
     Route: 042
     Dates: start: 20201021, end: 20201021
  41. NADROPARIN [Concomitant]
     Active Substance: NADROPARIN
     Dosage: 2850 IU, QD
     Route: 058
     Dates: start: 20201024
  42. HALOPERIDOL. [Concomitant]
     Active Substance: HALOPERIDOL
     Dosage: 2.5 MG, EVERY 12 HOURS (BID)
     Route: 042
     Dates: start: 20201109, end: 20201109
  43. HALOPERIDOL. [Concomitant]
     Active Substance: HALOPERIDOL
     Dosage: 0.5 MG, DAILY
     Route: 048
     Dates: start: 20201117, end: 20201117
  44. PANTOPRAZOLE [Concomitant]
     Active Substance: PANTOPRAZOLE
     Dosage: 40 MG, QD
     Route: 048
     Dates: start: 20201010, end: 20201024
  45. R DHAC [RITUXIMAB] [Suspect]
     Active Substance: RITUXIMAB
  46. MESNA. [Suspect]
     Active Substance: MESNA
     Indication: PROPHYLAXIS
     Dosage: UNK, UNKNOWN
     Route: 042
  47. COTRIMOXAZOL [Concomitant]
     Active Substance: SULFAMETHOXAZOLE\TRIMETHOPRIM
     Dosage: 480 MG, DAILY
     Route: 042
     Dates: start: 20201025, end: 20201110
  48. COTRIMOXAZOL [Concomitant]
     Active Substance: SULFAMETHOXAZOLE\TRIMETHOPRIM
     Dosage: 480 MG, DAILY
     Route: 048
     Dates: start: 20201115
  49. CIPROFLOXACIN. [Concomitant]
     Active Substance: CIPROFLOXACIN
     Dosage: 500 MG, EVERY 12 HOURS (BID)
     Route: 048
     Dates: start: 20201024, end: 20201025
  50. FLUCONAZOLE. [Concomitant]
     Active Substance: FLUCONAZOLE
     Dosage: 50 MG, DAILY
     Route: 048
     Dates: start: 20201111, end: 20201112
  51. INSULIN ASPART [Concomitant]
     Active Substance: INSULIN ASPART
     Dosage: UNK, UNKNOWN
     Route: 058
     Dates: start: 20201022, end: 20201027
  52. HALOPERIDOL. [Concomitant]
     Active Substance: HALOPERIDOL
     Dosage: 1 MG, DAILY
     Route: 048
     Dates: start: 20201107, end: 20201108
  53. HALOPERIDOL. [Concomitant]
     Active Substance: HALOPERIDOL
     Dosage: 1 MG, BID
     Route: 048
     Dates: start: 20201112, end: 20201115
  54. ALLOPURINOL. [Concomitant]
     Active Substance: ALLOPURINOL
     Dosage: 300 MG, QD
     Route: 048
     Dates: start: 20201016, end: 20201020
  55. METOCLOPRAMIDE. [Concomitant]
     Active Substance: METOCLOPRAMIDE
     Dosage: 10 MG, EVERY 8 HRS (TID)
     Route: 065
     Dates: start: 20201021
  56. FLUDARABINE [Suspect]
     Active Substance: FLUDARABINE PHOSPHATE
     Indication: BONE MARROW CONDITIONING REGIMEN
     Dosage: UNK, UNKNOWN
     Route: 042
  57. CIPROFLOXACIN. [Concomitant]
     Active Substance: CIPROFLOXACIN
     Dosage: 400 MG, EVERY 12 HOURS (BID)
     Route: 042
     Dates: start: 20201025, end: 20201028
  58. INSULIN ASPART [Concomitant]
     Active Substance: INSULIN ASPART
     Dosage: 1 DOSAGE FORM, PRN (2-6 IU)
     Route: 058
     Dates: start: 20201027
  59. LEVETIRACETAM. [Concomitant]
     Active Substance: LEVETIRACETAM
     Dosage: 500 MG, EVERY 12 HOURS (BID)
     Route: 048
     Dates: start: 20201023
  60. HALOPERIDOL. [Concomitant]
     Active Substance: HALOPERIDOL
     Dosage: UNK, UNKNOWN
     Route: 048
     Dates: start: 20201025, end: 20201102

REACTIONS (14)
  - Acute kidney injury [Recovered/Resolved]
  - Hyperkalaemia [Recovered/Resolved]
  - Delirium [Recovering/Resolving]
  - Neutrophil count decreased [Not Recovered/Not Resolved]
  - Sinus bradycardia [Recovered/Resolved]
  - Cytokine release syndrome [Recovering/Resolving]
  - Hypothalamo-pituitary disorder [Recovered/Resolved]
  - Platelet count decreased [Not Recovered/Not Resolved]
  - Cognitive disorder [Recovering/Resolving]
  - Hyponatraemia [Recovered/Resolved]
  - Urinary retention [Recovered/Resolved]
  - Febrile neutropenia [Recovered/Resolved]
  - Scrotal pain [Recovered/Resolved]
  - Lymphocyte count decreased [Not Recovered/Not Resolved]

NARRATIVE: CASE EVENT DATE: 20201009
